FAERS Safety Report 18125590 (Version 1)
Quarter: 2020Q3

REPORT INFORMATION
  Report Type: Spontaneous
  Country: CN (occurrence: CN)
  Receive Date: 20200807
  Receipt Date: 20200807
  Transmission Date: 20201103
  Serious: Yes (Other)
  Sender: FDA-Public Use
  Company Number: CN-PFIZER INC-2020298704

PATIENT
  Age: 73 Year
  Sex: Male
  Weight: 65 kg

DRUGS (2)
  1. LIPITOR [Suspect]
     Active Substance: ATORVASTATIN CALCIUM
     Indication: CEREBRAL INFARCTION
     Dosage: 20 MG, 1X/DAY
     Route: 048
     Dates: start: 20200629, end: 20200707
  2. SAFFLOWER EXTRACT AND ACEGLUTAMIDE [Concomitant]
     Indication: CEREBRAL INFARCTION
     Dosage: 20 ML, 1X/DAY
     Route: 041
     Dates: start: 20200629, end: 20200712

REACTIONS (2)
  - Pruritus [Unknown]
  - Rash erythematous [Recovered/Resolved]

NARRATIVE: CASE EVENT DATE: 20200705
